FAERS Safety Report 20745928 (Version 1)
Quarter: 2022Q2

REPORT INFORMATION
  Report Type: Spontaneous
  Country: US (occurrence: None)
  Receive Date: 20220424
  Receipt Date: 20220424
  Transmission Date: 20220720
  Serious: Yes (Other)
  Sender: FDA-Public Use
  Company Number: None

PATIENT
  Age: 52 Year
  Sex: Female
  Weight: 84.15 kg

DRUGS (1)
  1. TRAMADOL [Suspect]
     Active Substance: TRAMADOL
     Indication: Back pain
     Dosage: OTHER QUANTITY : 2 TABLET(S);?FREQUENCY : EVERY 4 HOURS;?
     Route: 048
     Dates: start: 20220421, end: 20220421

REACTIONS (9)
  - Pruritus [None]
  - Urinary retention [None]
  - Insomnia [None]
  - Dyspnoea [None]
  - Heart rate decreased [None]
  - Nausea [None]
  - Confusional state [None]
  - Near death experience [None]
  - Feeling abnormal [None]

NARRATIVE: CASE EVENT DATE: 20220421
